FAERS Safety Report 6553750-5 (Version None)
Quarter: 2010Q1

REPORT INFORMATION
  Report Type: 
  Country: None (occurrence: None)
  Receive Date: 20100125
  Receipt Date: 20100125
  Transmission Date: 20100710
  Serious: No
  Sender: FDA-Public Use
  Company Number: None

PATIENT
  Sex: Male
  Weight: 79.3795 kg

DRUGS (2)
  1. VIMPAT [Suspect]
     Indication: CONVULSION
     Dosage: 100 MG TWICE DAILY MOUTH; 150MG TWICE DAILY MOUTH
     Route: 048
  2. VIMPAT [Suspect]
     Indication: CONVULSION
     Dosage: 100 MG TWICE DAILY MOUTH; 150MG TWICE DAILY MOUTH
     Route: 048

REACTIONS (6)
  - BALANCE DISORDER [None]
  - CONFUSIONAL STATE [None]
  - DIARRHOEA [None]
  - DIZZINESS [None]
  - MEMORY IMPAIRMENT [None]
  - VOMITING [None]
